FAERS Safety Report 25389597 (Version 1)
Quarter: 2025Q2

REPORT INFORMATION
  Report Type: Report from Study
  Country: CA (occurrence: CA)
  Receive Date: 20250603
  Receipt Date: 20250603
  Transmission Date: 20250717
  Serious: Yes (Other)
  Sender: AUROBINDO
  Company Number: CA-AUROBINDO-AUR-APL-2025-027660

PATIENT

DRUGS (5)
  1. OLANZAPINE [Suspect]
     Active Substance: OLANZAPINE
     Indication: Psychotic disorder
     Dosage: 12 MILLIGRAM, ONCE A DAY
     Route: 065
  2. LURASIDONE [Suspect]
     Active Substance: LURASIDONE
     Indication: Psychotic disorder
     Dosage: 20 MILLIGRAM, ONCE A DAY
     Route: 065
  3. CITALOPRAM [Suspect]
     Active Substance: CITALOPRAM
     Indication: Psychotic disorder
     Dosage: 10 MILLIGRAM, ONCE A DAY
     Route: 065
  4. PREGABALIN [Suspect]
     Active Substance: PREGABALIN
     Indication: Psychotic disorder
     Dosage: 175 MILLIGRAM, ONCE A DAY
     Route: 065
  5. BENZTROPINE [Suspect]
     Active Substance: BENZTROPINE
     Indication: Psychotic disorder
     Dosage: 0.5 MILLIGRAM, ONCE A DAY
     Route: 065

REACTIONS (1)
  - Anticholinergic syndrome [Unknown]
